FAERS Safety Report 18307321 (Version 1)
Quarter: 2020Q3

REPORT INFORMATION
  Report Type: Spontaneous
  Country: US (occurrence: US)
  Receive Date: 20200924
  Receipt Date: 20200924
  Transmission Date: 20201103
  Serious: No
  Sender: FDA-Public Use
  Company Number: None

PATIENT
  Age: 35 Year
  Sex: Female
  Weight: 64.8 kg

DRUGS (6)
  1. CLONAZEPAM. [Concomitant]
     Active Substance: CLONAZEPAM
     Dates: start: 20190310
  2. QUETIAPINE. [Concomitant]
     Active Substance: QUETIAPINE
     Dates: start: 20200508
  3. BUPROPION XL [Concomitant]
     Active Substance: BUPROPION
     Dates: start: 20150921
  4. BUPRENORPHINE 8 MG?NALOXONE 2 MG SUBLINGUAL TABLET [Suspect]
     Active Substance: BUPRENORPHINE HYDROCHLORIDE\NALOXONE HYDROCHLORIDE
     Indication: DRUG DEPENDENCE
     Route: 060
     Dates: start: 20200605, end: 20200924
  5. LAMOTRIGINE. [Concomitant]
     Active Substance: LAMOTRIGINE
     Dates: start: 20200403
  6. MIRTAZIPINE [Concomitant]
     Active Substance: MIRTAZAPINE
     Dates: start: 20200331

REACTIONS (1)
  - Nausea [None]

NARRATIVE: CASE EVENT DATE: 20200923
